FAERS Safety Report 25920464 (Version 4)
Quarter: 2025Q4

REPORT INFORMATION
  Report Type: Report from Study
  Country: US (occurrence: US)
  Receive Date: 20251014
  Receipt Date: 20251216
  Transmission Date: 20260118
  Serious: No
  Sender: MALLINCKRODT
  Company Number: US-MALLINCKRODT-MNK202506393

PATIENT
  Sex: Female
  Weight: 112 kg

DRUGS (3)
  1. CORTICOTROPIN [Suspect]
     Active Substance: CORTICOTROPIN
     Indication: Nephrotic syndrome
     Dosage: 40 UNITS
  2. CORTICOTROPIN [Suspect]
     Active Substance: CORTICOTROPIN
     Dosage: 80 UNITS
     Route: 058
     Dates: start: 20251025, end: 2025
  3. CORTICOTROPIN [Suspect]
     Active Substance: CORTICOTROPIN
     Dosage: 40 UNITS
     Route: 058
     Dates: start: 2025

REACTIONS (8)
  - Taste disorder [Unknown]
  - Blood pressure abnormal [Unknown]
  - Blood cholesterol abnormal [Unknown]
  - Alopecia [Recovered/Resolved]
  - Feeling abnormal [Unknown]
  - Headache [Unknown]
  - Increased appetite [Unknown]
  - Fatigue [Unknown]
